FAERS Safety Report 8281932-3 (Version None)
Quarter: 2012Q2

REPORT INFORMATION
  Report Type: 
  Country: None (occurrence: None)
  Receive Date: 20120410
  Receipt Date: 20120307
  Transmission Date: 20120825
  Serious: Yes (Life-Threatening, Hospitalization, Other)
  Sender: FDA-Public Use
  Company Number: NSR_00492_2012

PATIENT
  Age: 52 Year
  Sex: Male

DRUGS (2)
  1. VENLAFAXINE [Suspect]
     Indication: DEPRESSION
  2. CHLORPROTHIXENE (CHLOROPROTIXEN) [Suspect]
     Indication: DEPRESSION
     Dosage: (30 MG,DF)

REACTIONS (6)
  - BLOOD BILIRUBIN INCREASED [None]
  - DEPRESSION [None]
  - BLOOD CHOLESTEROL INCREASED [None]
  - INAPPROPRIATE ANTIDIURETIC HORMONE SECRETION [None]
  - COMPUTERISED TOMOGRAM ABNORMAL [None]
  - LEUKOCYTOSIS [None]
